FAERS Safety Report 4507274-7 (Version None)
Quarter: 2004Q4

REPORT INFORMATION
  Report Type: 
  Country: None (occurrence: None)
  Receive Date: 20041025
  Receipt Date: 20040521
  Transmission Date: 20050328
  Serious: Yes (Hospitalization)
  Sender: FDA-Public Use
  Company Number: US-JNJFOC-20040505501

PATIENT
  Age: 73 Year
  Sex: Female
  Weight: 54.4316 kg

DRUGS (8)
  1. INFLIXIMAB (INFLIXIMAB, RECOMBINANT) LYOPHILIZED POWDER [Suspect]
     Indication: RHEUMATOID ARTHRITIS
     Dosage: 17.5 MG, 1 IN 1 WEEK, INTRAVENOUS
     Route: 042
     Dates: start: 20011205
  2. METHOTREXATE [Concomitant]
  3. PRILOSEC [Concomitant]
  4. SYNTHROID [Concomitant]
  5. FOLIC ACID [Concomitant]
  6. ARICEPT [Concomitant]
  7. DETROL LA [Concomitant]
  8. REPLAX (ELETRIPTAN HYDROBROMIDE) [Concomitant]

REACTIONS (1)
  - CHOLECYSTITIS [None]
